FAERS Safety Report 14617945 (Version 1)
Quarter: 2018Q1

REPORT INFORMATION
  Report Type: Spontaneous
  Country: US (occurrence: US)
  Receive Date: 20180309
  Receipt Date: 20180309
  Transmission Date: 20180509
  Serious: Yes (Life-Threatening, Hospitalization)
  Sender: FDA-Public Use
  Company Number: None

PATIENT
  Age: 53 Year
  Sex: Male

DRUGS (1)
  1. WARFARIN [Suspect]
     Active Substance: WARFARIN
     Indication: ATRIAL FIBRILLATION
     Route: 048
     Dates: start: 20091208, end: 20180208

REACTIONS (8)
  - International normalised ratio abnormal [None]
  - Cardiomyopathy [None]
  - Intra-abdominal haematoma [None]
  - Pulseless electrical activity [None]
  - Hypovolaemia [None]
  - Hyperkalaemia [None]
  - Intra-abdominal haemorrhage [None]
  - Cardiac tamponade [None]

NARRATIVE: CASE EVENT DATE: 20180212
